FAERS Safety Report 10251973 (Version 2)
Quarter: 2014Q3

REPORT INFORMATION
  Report Type: Report from Study
  Country: MX (occurrence: MX)
  Receive Date: 20140623
  Receipt Date: 20140806
  Transmission Date: 20150326
  Serious: Yes (Other)
  Sender: FDA-Public Use
  Company Number: MX-ORION CORPORATION ORION PHARMA-ENTC2014-0221

PATIENT
  Sex: Male

DRUGS (2)
  1. STALEVO [Suspect]
     Active Substance: CARBIDOPA\ENTACAPONE\LEVODOPA
     Indication: PARKINSON^S DISEASE
     Dosage: STRENGTH: 150/37.5/200 MG
     Route: 048
     Dates: start: 2011
  2. NORFERON [Concomitant]
     Indication: CEREBROVASCULAR DISORDER
     Route: 065
     Dates: start: 2012

REACTIONS (2)
  - Wrong technique in drug usage process [Not Recovered/Not Resolved]
  - Arrhythmia [Recovering/Resolving]

NARRATIVE: CASE EVENT DATE: 2011
